FAERS Safety Report 4492570-2 (Version None)
Quarter: 2004Q4

REPORT INFORMATION
  Report Type: 
  Country: None (occurrence: None)
  Receive Date: 20041104
  Receipt Date: 20041025
  Transmission Date: 20050328
  Serious: Yes (Hospitalization)
  Sender: FDA-Public Use
  Company Number: US-ABBOTT-04P-163-0278577-01

PATIENT
  Sex: Female
  Weight: 68 kg

DRUGS (4)
  1. HUMIRA [Suspect]
     Indication: RHEUMATOID ARTHRITIS
     Dosage: 40 MG
     Route: 058
     Dates: start: 20010220
  2. SALBUTAMOL [Concomitant]
     Indication: ASTHMA
     Route: 055
     Dates: start: 20040428
  3. ALENDRONATE SODIUM [Concomitant]
     Indication: OSTEOPOROSIS
     Route: 048
     Dates: start: 19970603, end: 20040915
  4. ALENDRONATE SODIUM [Concomitant]
     Route: 048
     Dates: start: 20040916

REACTIONS (3)
  - HYPOAESTHESIA ORAL [None]
  - PARATHYROID TUMOUR BENIGN [None]
  - PHARYNGOLARYNGEAL PAIN [None]
